FAERS Safety Report 23308546 (Version 3)
Quarter: 2024Q1

REPORT INFORMATION
  Report Type: Spontaneous
  Country: JP (occurrence: JP)
  Receive Date: 20231218
  Receipt Date: 20240212
  Transmission Date: 20240410
  Serious: Yes (Other)
  Sender: FDA-Public Use
  Company Number: JP-SA-2023SA390343

PATIENT
  Age: 82 Year
  Sex: Male

DRUGS (4)
  1. OXALIPLATIN [Suspect]
     Active Substance: OXALIPLATIN
     Indication: Rectal cancer stage IV
     Dosage: INJECTION
     Route: 042
  2. LEVOLEUCOVORIN CALCIUM [Suspect]
     Active Substance: LEVOLEUCOVORIN CALCIUM
     Indication: Rectal cancer stage IV
     Dosage: INJECTION
     Route: 042
  3. PANITUMUMAB [Suspect]
     Active Substance: PANITUMUMAB
     Indication: Rectal cancer stage IV
  4. FLUOROURACIL [Suspect]
     Active Substance: FLUOROURACIL
     Indication: Rectal cancer stage IV

REACTIONS (7)
  - Cardio-respiratory arrest [Unknown]
  - Altered state of consciousness [Unknown]
  - Ventricular tachycardia [Unknown]
  - Pyrexia [Unknown]
  - Ventricular extrasystoles [Unknown]
  - Ventricular fibrillation [Unknown]
  - Hypomagnesaemia [Unknown]
